FAERS Safety Report 8821815 (Version 1)
Quarter: 2012Q4

REPORT INFORMATION
  Report Type: 
  Country: US (occurrence: US)
  Receive Date: 20121002
  Receipt Date: 20121002
  Transmission Date: 20130627
  Serious: No
  Sender: FDA-Public Use
  Company Number: US-009507513-1210USA000445

PATIENT
  Age: 75 Year
  Sex: Male

DRUGS (5)
  1. JANUMET [Suspect]
     Dosage: 1 DF, bid
     Route: 048
  2. TIMOLOL [Concomitant]
  3. LOSARTAN POTASSIUM [Concomitant]
  4. SIMVASTATIN [Concomitant]
  5. FEXOFENADINE HYDROCHLORIDE [Concomitant]

REACTIONS (7)
  - Abdominal discomfort [Unknown]
  - Skin disorder [Unknown]
  - Increased upper airway secretion [Unknown]
  - Fatigue [Unknown]
  - Pruritus [Unknown]
  - Dizziness [Unknown]
  - Anxiety [Unknown]
